FAERS Safety Report 14279996 (Version 5)
Quarter: 2018Q3

REPORT INFORMATION
  Report Type: Report from Study
  Country: US (occurrence: US)
  Receive Date: 20171212
  Receipt Date: 20180914
  Transmission Date: 20181010
  Serious: Yes (Hospitalization)
  Sender: FDA-Public Use
  Company Number: US-ACTELION-A-NJ2017-162360

PATIENT
  Age: 59 Year
  Sex: Female

DRUGS (4)
  1. OPSUMIT [Suspect]
     Active Substance: MACITENTAN
     Indication: PULMONARY HYPERTENSION
     Dosage: 10 MG, QD
     Route: 048
     Dates: start: 20171107
  2. ADEMPAS [Concomitant]
     Active Substance: RIOCIGUAT
  3. LIDOCAINE. [Concomitant]
     Active Substance: LIDOCAINE
  4. CEFDINIR. [Concomitant]
     Active Substance: CEFDINIR

REACTIONS (10)
  - Fluid retention [Recovered/Resolved]
  - Blood potassium decreased [Unknown]
  - Oedema [Unknown]
  - Urinary tract infection [Unknown]
  - Vomiting [Unknown]
  - Dizziness [Unknown]
  - Cardiac failure congestive [Unknown]
  - Drug dose omission [Not Recovered/Not Resolved]
  - Cardiac failure [Unknown]
  - Dehydration [Not Recovered/Not Resolved]

NARRATIVE: CASE EVENT DATE: 20171123
